FAERS Safety Report 20879618 (Version 1)
Quarter: 2022Q2

REPORT INFORMATION
  Report Type: Spontaneous
  Country: US (occurrence: None)
  Receive Date: 20220526
  Receipt Date: 20220526
  Transmission Date: 20220721
  Serious: No
  Sender: FDA-Public Use
  Company Number: None

PATIENT
  Age: 74 Year
  Sex: Male

DRUGS (1)
  1. PRALUENT [Suspect]
     Active Substance: ALIROCUMAB
     Indication: Product used for unknown indication

REACTIONS (5)
  - Adverse reaction [None]
  - Asthenia [None]
  - Myalgia [None]
  - Heart rate increased [None]
  - Complication associated with device [None]

NARRATIVE: CASE EVENT DATE: 20220525
